FAERS Safety Report 18822237 (Version 1)
Quarter: 2021Q1

REPORT INFORMATION
  Report Type: Spontaneous
  Country: US (occurrence: US)
  Receive Date: 20210202
  Receipt Date: 20210202
  Transmission Date: 20210419
  Serious: Yes (Other)
  Sender: FDA-Public Use
  Company Number: US-HIKMA PHARMACEUTICALS USA INC.-US-H14001-21-00544

PATIENT
  Age: 32 Year
  Sex: Male

DRUGS (3)
  1. NALOXONE [Suspect]
     Active Substance: NALOXONE
     Indication: PRODUCT USED FOR UNKNOWN INDICATION
     Dosage: UNKNOWN
     Route: 065
  2. BUPROPION. [Concomitant]
     Active Substance: BUPROPION
  3. FLUMAZENIL. [Suspect]
     Active Substance: FLUMAZENIL
     Indication: PRODUCT USED FOR UNKNOWN INDICATION
     Dosage: UNKNOWN
     Route: 065

REACTIONS (1)
  - Generalised tonic-clonic seizure [Unknown]
